FAERS Safety Report 5345045-2 (Version None)
Quarter: 2007Q2

REPORT INFORMATION
  Report Type: 
  Country: None (occurrence: None)
  Receive Date: 20070425
  Receipt Date: 20060227
  Transmission Date: 20071010
  Serious: Yes (Other)
  Sender: FDA-Public Use
  Company Number: WAES 0602USA05822

PATIENT
  Age: 6 Year

DRUGS (1)
  1. SINGULAIR [Suspect]
     Indication: ASTHMA
     Dosage: 5 MG/DAILY/PO
     Route: 048
     Dates: start: 20030201, end: 20060220

REACTIONS (2)
  - ANAPHYLACTIC REACTION [None]
  - PRESCRIBED OVERDOSE [None]
